FAERS Safety Report 7005054-4 (Version None)
Quarter: 2010Q3

REPORT INFORMATION
  Report Type: 
  Country: None (occurrence: None)
  Receive Date: 20100921
  Receipt Date: 20100908
  Transmission Date: 20110219
  Serious: Yes (Hospitalization)
  Sender: FDA-Public Use
  Company Number: PHHY2010MX60244

PATIENT
  Age: 52 Year
  Sex: Female

DRUGS (2)
  1. DIOVAN [Suspect]
     Indication: HYPERTENSION
  2. RASILEZ [Suspect]
     Indication: RENAL DISORDER
     Dosage: 1 DF, PER DAY

REACTIONS (2)
  - HYPERTENSION [None]
  - SWELLING [None]
